FAERS Safety Report 16021701 (Version 1)
Quarter: 2019Q1

REPORT INFORMATION
  Report Type: Report from Study
  Country: BR (occurrence: BR)
  Receive Date: 20190301
  Receipt Date: 20190301
  Transmission Date: 20190418
  Serious: Yes (Hospitalization, Other)
  Sender: FDA-Public Use
  Company Number: BR-ROCHE-2160986

PATIENT
  Sex: Male
  Weight: 42 kg

DRUGS (3)
  1. ACTEMRA [Suspect]
     Active Substance: TOCILIZUMAB
     Indication: RHEUMATOID ARTHRITIS
     Route: 042
     Dates: start: 20170525
  2. MESACOL (BRAZIL) [Concomitant]
     Indication: GASTROINTESTINAL INFLAMMATION
  3. MESACOL (BRAZIL) [Concomitant]
     Indication: CROHN^S DISEASE

REACTIONS (4)
  - Malaise [Recovered/Resolved]
  - Cataract [Recovering/Resolving]
  - Asthenia [Recovered/Resolved]
  - Vomiting [Recovered/Resolved]
